FAERS Safety Report 21452025 (Version 1)
Quarter: 2022Q4

REPORT INFORMATION
  Report Type: Spontaneous
  Country: BG (occurrence: BG)
  Receive Date: 20221013
  Receipt Date: 20221013
  Transmission Date: 20230112
  Serious: Yes (Life-Threatening, Other)
  Sender: FDA-Public Use
  Company Number: BG-BRISTOL-MYERS SQUIBB COMPANY-2022-119940

PATIENT
  Age: 41 Year
  Sex: Female

DRUGS (2)
  1. OPDIVO [Suspect]
     Active Substance: NIVOLUMAB
     Indication: Metastatic malignant melanoma
     Route: 065
  2. YERVOY [Suspect]
     Active Substance: IPILIMUMAB
     Indication: Metastatic malignant melanoma
     Dosage: 3MG/KG
     Route: 065

REACTIONS (4)
  - Immune-mediated gastritis [Recovering/Resolving]
  - Immune-mediated pancreatitis [Recovering/Resolving]
  - Malignant neoplasm progression [Unknown]
  - Metastases to central nervous system [Unknown]
